FAERS Safety Report 8010971 (Version 7)
Quarter: 2012Q4

REPORT INFORMATION
  Report Type: 
  Country: JP (occurrence: JP)
  Receive Date: 20110627
  Receipt Date: 20121220
  Transmission Date: 20130627
  Serious: Yes (Death, Hospitalization)
  Sender: FDA-Public Use
  Company Number: JP-BAYER-2011-050739

PATIENT
  Age: 81 Year
  Sex: Female
  Weight: 37 kg

DRUGS (22)
  1. SORAFENIB (RAF KINASE INHIBITOR) [Suspect]
     Indication: PAPILLARY THYROID CANCER
     Dosage: 800 mg, QD
     Route: 048
     Dates: start: 20110120, end: 20110128
  2. SORAFENIB (RAF KINASE INHIBITOR) [Suspect]
     Indication: PAPILLARY THYROID CANCER
     Dosage: 600 mg, QD
     Route: 048
     Dates: start: 20110128, end: 20110209
  3. SORAFENIB (RAF KINASE INHIBITOR) [Suspect]
     Indication: PAPILLARY THYROID CANCER
     Dosage: 400 mg, QD
     Route: 048
     Dates: start: 20110210
  4. SORAFENIB (RAF KINASE INHIBITOR) [Suspect]
     Indication: PAPILLARY THYROID CANCER
     Dosage: 200 mg, QD
     Route: 048
     Dates: start: 20110311, end: 20110610
  5. PLACEBO [Suspect]
     Indication: THYROID CANCER
     Dosage: 800 mg, QD
     Route: 048
     Dates: start: 20101115, end: 20101214
  6. PLACEBO [Suspect]
     Indication: THYROID CANCER
     Dosage: 600 mg, QD
     Route: 048
     Dates: start: 20101220, end: 20110111
  7. OXYGEN [Concomitant]
     Indication: OXYGEN SUPPLEMENTATION
     Dosage: UNK
     Route: 055
     Dates: start: 201101
  8. THYRADIN S [Concomitant]
     Indication: HYPOTHYROIDISM
     Dosage: 150 ?g, QD
     Route: 048
     Dates: start: 200606
  9. CALCIUM LACTATE [Concomitant]
     Indication: HYPOCALCAEMIA
     Dosage: 3 g, BID
     Route: 048
     Dates: start: 200408
  10. ALFAROL [Concomitant]
     Indication: HYPOPARATHYROIDISM
     Dosage: 1 ?g, QD
     Route: 048
     Dates: start: 20110305
  11. GASTER [Concomitant]
     Indication: GASTRITIS PROPHYLAXIS
     Dosage: 10 mg, QD
     Route: 048
     Dates: start: 20101109
  12. BLOPRESS [Concomitant]
     Indication: HYPERTENSION
     Dosage: 8 mg, QD
     Route: 048
     Dates: start: 200401, end: 20110610
  13. MAGLAX [Concomitant]
     Indication: CONSTIPATION PROPHYLAXIS
     Dosage: 250 mg, TID
     Route: 048
     Dates: start: 20110111
  14. MS CONTIN [Concomitant]
     Indication: COUGH
     Dosage: 10 mg, BID (TABLET FORM)
     Route: 048
     Dates: start: 20110121, end: 20110610
  15. MS CONTIN [Concomitant]
     Indication: PAIN NOS
     Dosage: 10 mg, QD (INJECTION FORM)
     Route: 041
     Dates: start: 20110611, end: 20110623
  16. MS CONTIN [Concomitant]
     Indication: COUGH
     Dosage: 10 mg, QD (ITABLET FORM)
     Route: 048
     Dates: start: 20110623
  17. LOXONIN [Concomitant]
     Indication: LOW BACK PAIN
     Dosage: 60mg PRN (tablet)
     Route: 048
     Dates: start: 201006, end: 20110610
  18. LOXONIN [Concomitant]
     Indication: LUMBAR SPINAL STENOSIS
     Dosage: UNK, transdermal patch
     Route: 062
     Dates: start: 2007
  19. OPSO [Concomitant]
     Indication: COUGH
     Dosage: 5 mg, PRN
     Route: 048
     Dates: start: 20110114
  20. HIRUDOID [Concomitant]
     Indication: HAND AND FOOT SYNDROME
     Dosage: UNK
     Route: 061
     Dates: start: 20110210
  21. GASTER [Concomitant]
     Indication: VOMITING
     Dosage: 20 mg, QD
     Route: 041
     Dates: start: 20110612
  22. VASOLAN [Concomitant]
     Indication: PAROXYSMAL SUPRAVENTRICULAR TACHYCARDIA
     Dosage: 5 mg, QD
     Route: 041
     Dates: start: 20110612

REACTIONS (1)
  - Cerebral ischaemia [Recovered/Resolved]
